FAERS Safety Report 4775890-3 (Version None)
Quarter: 2005Q3

REPORT INFORMATION
  Report Type: 
  Country: None (occurrence: None)
  Receive Date: 20050914
  Receipt Date: 20050328
  Transmission Date: 20060218
  Serious: Yes (Life-Threatening, Hospitalization)
  Sender: FDA-Public Use
  Company Number: 163-20785-05030725 (0)

PATIENT
  Age: 51 Year
  Sex: Male

DRUGS (6)
  1. THALOMID [Suspect]
     Indication: METASTATIC RENAL CELL CARCINOMA
     Dosage: 100-300 MG,
     Route: 048
     Dates: start: 20050309, end: 20050325
  2. PROLEUKIN [Suspect]
     Indication: METASTATIC RENAL CELL CARCINOMA
     Dosage: 52.2 MILLIONS, Q8H, INTRAVENOUS
     Route: 042
     Dates: start: 20050209, end: 20050214
  3. PROLEUKIN [Suspect]
     Indication: METASTATIC RENAL CELL CARCINOMA
     Dosage: 52.2 MILLIONS, Q8H, INTRAVENOUS
     Route: 042
     Dates: start: 20050225, end: 20050301
  4. ZOMETA [Concomitant]
  5. LIPITOR [Concomitant]
  6. DULCOLAX [Concomitant]

REACTIONS (3)
  - DEEP VEIN THROMBOSIS [None]
  - OEDEMA PERIPHERAL [None]
  - PAIN IN EXTREMITY [None]
